FAERS Safety Report 23779085 (Version 1)
Quarter: 2024Q2

REPORT INFORMATION
  Report Type: Spontaneous
  Country: US (occurrence: None)
  Receive Date: 20240424
  Receipt Date: 20240424
  Transmission Date: 20240716
  Serious: Yes (Death)
  Sender: FDA-Public Use
  Company Number: None

PATIENT
  Age: 77 Year
  Sex: Male
  Weight: 74.5 kg

DRUGS (1)
  1. LISOCABTAGENE MARALEUCEL [Suspect]
     Active Substance: LISOCABTAGENE MARALEUCEL
     Indication: Diffuse large B-cell lymphoma
     Dosage: OTHER FREQUENCY : ONE TIME ONLY;?
     Route: 042
     Dates: start: 20240301, end: 20240301

REACTIONS (10)
  - Encephalopathy [None]
  - Hypotension [None]
  - Neutropenia [None]
  - Septic shock [None]
  - Lymphocyte adoptive therapy [None]
  - Cytokine release syndrome [None]
  - Immune effector cell-associated neurotoxicity syndrome [None]
  - Cerebral atrophy [None]
  - Encephalitis [None]
  - Human herpesvirus 6 encephalitis [None]

NARRATIVE: CASE EVENT DATE: 20240409
